FAERS Safety Report 9397329 (Version 1)
Quarter: 2013Q3

REPORT INFORMATION
  Report Type: Spontaneous
  Country: US (occurrence: None)
  Receive Date: 20130708
  Receipt Date: 20130708
  Transmission Date: 20140515
  Serious: Yes (Other)
  Sender: FDA-Public Use
  Company Number: CA-ALSI-201300180

PATIENT
  Age: 55 Year
  Sex: Male

DRUGS (10)
  1. OXYGEN [Suspect]
     Indication: CHRONIC OBSTRUCTIVE PULMONARY DISEASE
     Dosage: 2.5 ONCE A MINUTE RESPIRATORY
     Dates: start: 20130314
  2. TYLENOL (PARACETAMOL) [Concomitant]
  3. VENTOLIN (SALBUTAMOL) [Concomitant]
     Indication: CHRONIC OBSTRUCTIVE PULMONARY DISEASE
  4. SPIRIVA (TIOTROPIUM) [Concomitant]
  5. ADVAIR (SALMETEROL; FLUTICASONE) [Concomitant]
  6. LASIX (FUROSEMIDE) [Concomitant]
  7. (GABAPENTIN) [Concomitant]
  8. CITALOPRAM [Concomitant]
  9. ZOPICLONE [Concomitant]
  10. QUETIAPINE [Concomitant]

REACTIONS (5)
  - Thermal burn [None]
  - Intentional drug misuse [None]
  - Lip injury [None]
  - Wound [None]
  - Disorientation [None]
